FAERS Safety Report 5919095-9 (Version None)
Quarter: 2008Q3

REPORT INFORMATION
  Report Type: 
  Country: None (occurrence: None)
  Receive Date: 20080909
  Receipt Date: 20061219
  Transmission Date: 20090109
  Serious: Yes (Death, Hospitalization)
  Sender: FDA-Public Use
  Company Number: 163-20785-06111286

PATIENT
  Age: 63 Year
  Sex: Female
  Weight: 67.1324 kg

DRUGS (4)
  1. THALOMID [Suspect]
     Indication: ACUTE MYELOID LEUKAEMIA
     Dosage: 200 MG, 1 IN 1 D, ORAL
     Route: 048
     Dates: start: 20060907, end: 20060915
  2. TOPOTECAN (TOPOTECAN) (0.85 MILLIGRAM(S)/SQ.METER) [Suspect]
     Indication: ACUTE MYELOID LEUKAEMIA
     Dosage: 1.4 MG/M2, OVER 24 HOURS X 3 DOSES, INTRAVENOUS
     Route: 042
     Dates: start: 20060919, end: 20060922
  3. FLUDARABINE (FLUDARABINE) (15 MILLIGRAM(S)/SQ.METER) [Suspect]
     Indication: ACUTE MYELOID LEUKAEMIA
     Dosage: 24 MG/M2, OVER 30 MINS DAILY X 5 DOSES, INTRAVENOUS
     Route: 042
     Dates: start: 20060914, end: 20060918
  4. CARBOPLATIN [Suspect]
     Indication: ACUTE MYELOID LEUKAEMIA
     Dosage: 230 MG, OVER 24 HOURS X 5 DOSES, NITRAVENOUS
     Route: 042
     Dates: start: 20060914, end: 20060919

REACTIONS (5)
  - BLOOD BILIRUBIN INCREASED [None]
  - HYPOCALCAEMIA [None]
  - MULTI-ORGAN FAILURE [None]
  - NEUTROPHIL COUNT DECREASED [None]
  - PLATELET COUNT DECREASED [None]
